FAERS Safety Report 17164375 (Version 1)
Quarter: 2019Q4

REPORT INFORMATION
  Report Type: Spontaneous
  Country: PL (occurrence: PL)
  Receive Date: 20191217
  Receipt Date: 20191217
  Transmission Date: 20200122
  Serious: Yes (Hospitalization)
  Sender: FDA-Public Use
  Company Number: PL-MYLANLABS-2019M1123084

PATIENT
  Age: 68 Year
  Sex: Female

DRUGS (5)
  1. OMEPRAZOLE. [Suspect]
     Active Substance: OMEPRAZOLE
     Indication: PROPHYLAXIS
     Dosage: 40 MILLIGRAM, QD
     Route: 048
  2. BUPRENORPHINE. [Concomitant]
     Active Substance: BUPRENORPHINE
     Dosage: 35 MCG/H, CHANGED EVERY 72 HOURS.
     Route: 062
  3. NAPROXEN SODIUM. [Suspect]
     Active Substance: NAPROXEN SODIUM
     Indication: ARTHRALGIA
     Dosage: 550 MILLIGRAM, Q2D
  4. FLECAINIDE [Concomitant]
     Active Substance: FLECAINIDE
     Dosage: 100 MILLIGRAM, Q2D
     Route: 048
  5. WARFARIN [Interacting]
     Active Substance: WARFARIN
     Indication: PRODUCT USED FOR UNKNOWN INDICATION
     Dosage: ALTERNATING DOSE 2/3 MG

REACTIONS (4)
  - Nausea [Recovered/Resolved]
  - Haematemesis [Recovered/Resolved]
  - Labelled drug-drug interaction medication error [Unknown]
  - International normalised ratio increased [Recovered/Resolved]
